FAERS Safety Report 14947616 (Version 1)
Quarter: 2018Q2

REPORT INFORMATION
  Report Type: Spontaneous
  Country: IT (occurrence: IT)
  Receive Date: 20180529
  Receipt Date: 20180529
  Transmission Date: 20180711
  Serious: Yes (Hospitalization)
  Sender: FDA-Public Use
  Company Number: IT-ABBVIE-18P-083-2364404-00

PATIENT
  Age: 63 Year
  Sex: Female

DRUGS (2)
  1. MAVIRET [Suspect]
     Active Substance: GLECAPREVIR\PIBRENTASVIR
     Indication: HEPATITIS C
     Dosage: 100 MG/40 MG FILM-COATED TABLETS
     Route: 048
     Dates: start: 20180424, end: 20180504
  2. TRIUMEQ [Concomitant]
     Active Substance: ABACAVIR SULFATE\DOLUTEGRAVIR SODIUM\LAMIVUDINE
     Indication: HIV INFECTION
     Dosage: 50 MG/600 MG/300 MG TABLETS
     Route: 048
     Dates: start: 20180219

REACTIONS (2)
  - Ischaemic stroke [Recovering/Resolving]
  - Pneumonia bacterial [Recovering/Resolving]

NARRATIVE: CASE EVENT DATE: 20180504
